FAERS Safety Report 16467890 (Version 1)
Quarter: 2019Q2

REPORT INFORMATION
  Report Type: Spontaneous
  Country: GB (occurrence: GB)
  Receive Date: 20190624
  Receipt Date: 20190624
  Transmission Date: 20190711
  Serious: Yes (Other)
  Sender: FDA-Public Use
  Company Number: GB-ACCORD-134575

PATIENT
  Age: 60 Year
  Sex: Female
  Weight: 119 kg

DRUGS (13)
  1. RAMIPRIL. [Suspect]
     Active Substance: RAMIPRIL
     Indication: VASODILATATION
     Route: 048
     Dates: start: 20190315, end: 20190424
  2. WARFARIN [Concomitant]
     Active Substance: WARFARIN
  3. BUMETANIDE. [Concomitant]
     Active Substance: BUMETANIDE
  4. AMILORIDE [Concomitant]
     Active Substance: AMILORIDE
  5. ASCORBIC ACID. [Concomitant]
     Active Substance: ASCORBIC ACID
  6. FEXOFENADINE/FEXOFENADINE HYDROCHLORIDE [Concomitant]
  7. RANITIDINE. [Concomitant]
     Active Substance: RANITIDINE
  8. BISOPROLOL [Concomitant]
     Active Substance: BISOPROLOL
  9. PARACETAMOL [Concomitant]
     Active Substance: ACETAMINOPHEN
  10. DIHYDROCODEINE [Concomitant]
     Active Substance: DIHYDROCODEINE
  11. MORPHINE [Concomitant]
     Active Substance: MORPHINE
     Route: 048
  12. DIGOXIN. [Concomitant]
     Active Substance: DIGOXIN
  13. ZINC. [Concomitant]
     Active Substance: ZINC

REACTIONS (5)
  - Pain [Unknown]
  - Pruritus [Unknown]
  - Malaise [Unknown]
  - Pemphigoid [Recovered/Resolved]
  - Blister [Unknown]
